FAERS Safety Report 12564531 (Version 7)
Quarter: 2019Q3

REPORT INFORMATION
  Report Type: Spontaneous
  Country: US (occurrence: US)
  Receive Date: 20160718
  Receipt Date: 20190730
  Transmission Date: 20191004
  Serious: Yes (Other)
  Sender: FDA-Public Use
  Company Number: US-ASTRAZENECA-2016SE62069

PATIENT
  Age: 741 Month
  Sex: Female
  Weight: 90.7 kg

DRUGS (21)
  1. TAGRISSO [Suspect]
     Active Substance: OSIMERTINIB
     Indication: LUNG ADENOCARCINOMA
     Route: 048
     Dates: start: 201906
  2. CLINDAMYCIN. [Concomitant]
     Active Substance: CLINDAMYCIN
     Indication: ACNE
     Route: 061
     Dates: start: 201606
  3. VERAPAMIL [Concomitant]
     Active Substance: VERAPAMIL HYDROCHLORIDE
     Indication: BLOOD PRESSURE DIASTOLIC ABNORMAL
     Route: 048
     Dates: start: 2016
  4. SPIRONOLACTONE. [Concomitant]
     Active Substance: SPIRONOLACTONE
     Indication: OEDEMA
     Route: 048
  5. ALPRAZOLAM. [Concomitant]
     Active Substance: ALPRAZOLAM
     Indication: ANXIETY
     Dosage: 1.0MG AS REQUIRED
     Route: 048
  6. IRESSA [Suspect]
     Active Substance: GEFITINIB
     Indication: LUNG CARCINOMA CELL TYPE UNSPECIFIED STAGE 0
     Route: 048
     Dates: start: 20160524
  7. IRESSA [Suspect]
     Active Substance: GEFITINIB
     Indication: LUNG CARCINOMA CELL TYPE UNSPECIFIED STAGE 0
     Route: 048
     Dates: start: 20160611, end: 201610
  8. ACIPHEX [Concomitant]
     Active Substance: RABEPRAZOLE SODIUM
     Route: 048
  9. BUPROPION. [Concomitant]
     Active Substance: BUPROPION
     Indication: MENOPAUSE
     Route: 048
  10. ZOLPIDEM [Concomitant]
     Active Substance: ZOLPIDEM TARTRATE
     Indication: SLEEP DISORDER
     Route: 048
  11. IMODIUM [Concomitant]
     Active Substance: LOPERAMIDE HYDROCHLORIDE
     Route: 048
  12. ZOFRAN [Concomitant]
     Active Substance: ONDANSETRON HYDROCHLORIDE
     Indication: VOMITING
     Dosage: 8.0MG AS REQUIRED
     Route: 060
  13. OXYCODONE [Concomitant]
     Active Substance: OXYCODONE
     Indication: PAIN
     Route: 048
  14. CEFDINIR. [Concomitant]
     Active Substance: CEFDINIR
     Indication: URINARY TRACT INFECTION
     Route: 048
  15. HYDROCHLOROTHIAZIDE. [Concomitant]
     Active Substance: HYDROCHLOROTHIAZIDE
     Indication: OEDEMA
     Dosage: 25.0MG UNKNOWN
     Route: 048
  16. OXYCODONE [Concomitant]
     Active Substance: OXYCODONE
     Indication: PAIN
     Route: 048
  17. ALPRAZOLAM. [Concomitant]
     Active Substance: ALPRAZOLAM
     Indication: SLEEP DISORDER
     Dosage: 1.0MG AS REQUIRED
     Route: 048
  18. TIZANIDINE. [Concomitant]
     Active Substance: TIZANIDINE
     Indication: MUSCLE SPASMS
     Dosage: 2.0MG AS REQUIRED
     Route: 048
  19. PYRIDIUM [Concomitant]
     Active Substance: PHENAZOPYRIDINE
     Indication: URINARY TRACT PAIN
     Route: 048
  20. ZOFRAN [Concomitant]
     Active Substance: ONDANSETRON HYDROCHLORIDE
     Indication: NAUSEA
     Dosage: 8.0MG AS REQUIRED
     Route: 060
  21. FEMRING [Concomitant]
     Active Substance: ESTRADIOL ACETATE
     Route: 048

REACTIONS (53)
  - Malignant neoplasm progression [Unknown]
  - Oedema peripheral [Unknown]
  - Weight fluctuation [Unknown]
  - Klebsiella infection [Unknown]
  - Pain [Unknown]
  - Blister [Not Recovered/Not Resolved]
  - Swollen tongue [Unknown]
  - Oropharyngeal pain [Unknown]
  - Urinary tract infection [Not Recovered/Not Resolved]
  - Fluid retention [Unknown]
  - Skin atrophy [Unknown]
  - Ocular hyperaemia [Not Recovered/Not Resolved]
  - Muscle twitching [Unknown]
  - Lymph node pain [Unknown]
  - Metastases to lymph nodes [Unknown]
  - Cough [Not Recovered/Not Resolved]
  - Pain [Not Recovered/Not Resolved]
  - Dry eye [Not Recovered/Not Resolved]
  - Nausea [Not Recovered/Not Resolved]
  - Vomiting [Unknown]
  - Insomnia [Unknown]
  - Photosensitivity reaction [Unknown]
  - Gastrointestinal disorder [Unknown]
  - Hair disorder [Unknown]
  - Genital haemorrhage [Unknown]
  - Cystitis [Not Recovered/Not Resolved]
  - Alopecia [Not Recovered/Not Resolved]
  - Aphasia [Unknown]
  - Feeling abnormal [Unknown]
  - Dyspnoea [Unknown]
  - Rash [Not Recovered/Not Resolved]
  - Diarrhoea [Recovering/Resolving]
  - Oral herpes [Unknown]
  - Basal cell carcinoma [Unknown]
  - Migraine [Unknown]
  - Memory impairment [Not Recovered/Not Resolved]
  - Dyspareunia [Unknown]
  - Myalgia [Not Recovered/Not Resolved]
  - Pain in extremity [Not Recovered/Not Resolved]
  - Fatigue [Recovered/Resolved]
  - Back pain [Unknown]
  - Abdominal pain upper [Unknown]
  - Pain of skin [Recovered/Resolved]
  - Chest pain [Not Recovered/Not Resolved]
  - Arthralgia [Not Recovered/Not Resolved]
  - Ear pain [Unknown]
  - Feeling abnormal [Recovering/Resolving]
  - Genital injury [Unknown]
  - Chills [Not Recovered/Not Resolved]
  - Dry skin [Unknown]
  - Stomatitis [Unknown]
  - Sinus pain [Unknown]
  - Cyst [Unknown]

NARRATIVE: CASE EVENT DATE: 201606
